FAERS Safety Report 16357059 (Version 1)
Quarter: 2019Q2

REPORT INFORMATION
  Report Type: Spontaneous
  Country: FR (occurrence: FR)
  Receive Date: 20190527
  Receipt Date: 20190527
  Transmission Date: 20190711
  Serious: Yes (Death, Life-Threatening, Hospitalization)
  Sender: FDA-Public Use
  Company Number: FR-ADIENNEP-2019AD000275

PATIENT
  Age: 3 Year
  Sex: Female

DRUGS (1)
  1. TEPADINA [Suspect]
     Active Substance: THIOTEPA
     Indication: MEDULLOBLASTOMA
     Dosage: 800 MG/M2
     Route: 041
     Dates: start: 20190419, end: 20190419

REACTIONS (7)
  - Product selection error [Fatal]
  - Mucosal inflammation [Fatal]
  - Overdose [Fatal]
  - Device computer issue [Fatal]
  - Venoocclusive disease [Fatal]
  - Toxic skin eruption [Fatal]
  - Product preparation error [Fatal]

NARRATIVE: CASE EVENT DATE: 20190419
